FAERS Safety Report 20429894 (Version 1)
Quarter: 2022Q1

REPORT INFORMATION
  Report Type: Report from Study
  Country: FR (occurrence: FR)
  Receive Date: 20220204
  Receipt Date: 20220204
  Transmission Date: 20220423
  Serious: Yes (Other)
  Sender: FDA-Public Use
  Company Number: FR-SERVIER-S18010964

PATIENT

DRUGS (7)
  1. ONCASPAR [Suspect]
     Active Substance: PEGASPARGASE
     Indication: Acute lymphocytic leukaemia
     Dosage: 2025 IU ON D12 AND 26 OF EACH CYCLE
     Route: 042
     Dates: start: 20181123
  2. DEXAMETHASONE [Suspect]
     Active Substance: DEXAMETHASONE
     Indication: Acute lymphocytic leukaemia
     Dosage: 15 MG ON D8-28 OF EACH CYCLE
     Route: 048
     Dates: start: 20181120
  3. PREDNISOLONE [Suspect]
     Active Substance: PREDNISOLONE
     Indication: Acute lymphocytic leukaemia
     Dosage: 100 MG ON D1-7 OF EACH CYCLE
     Route: 048
     Dates: start: 20081112, end: 20181119
  4. TN UNSPECIFIED [Concomitant]
     Indication: Acute lymphocytic leukaemia
     Dosage: 2 MG ON D1 AND D8 OF EACH CYCLE
     Route: 042
     Dates: start: 20181120
  5. TN UNSPECIFIED [Concomitant]
     Indication: Acute lymphocytic leukaemia
     Dosage: 15 MG ON D2 OF EACH CYCLE
     Route: 037
     Dates: start: 20181113
  6. TN UNSPECIFIED [Concomitant]
     Indication: Acute lymphocytic leukaemia
     Dosage: 49 MG ON D8, 15, 22, 29 OF EACH CYCLE
     Route: 042
     Dates: start: 20181120
  7. TN UNSPECIFIED [Concomitant]
     Indication: Acute lymphocytic leukaemia

REACTIONS (1)
  - Diabetes mellitus [Recovered/Resolved]

NARRATIVE: CASE EVENT DATE: 20181126
